FAERS Safety Report 25117407 (Version 1)
Quarter: 2025Q1

REPORT INFORMATION
  Report Type: Spontaneous
  Country: ES (occurrence: ES)
  Receive Date: 20250325
  Receipt Date: 20250325
  Transmission Date: 20250409
  Serious: Yes (Death, Hospitalization, Other)
  Sender: ROCHE
  Company Number: None

PATIENT
  Age: 63 Year
  Sex: Male
  Weight: 109 kg

DRUGS (8)
  1. RITUXIMAB [Suspect]
     Active Substance: RITUXIMAB
     Indication: Diffuse large B-cell lymphoma
     Route: 065
  2. EPCORITAMAB [Suspect]
     Active Substance: EPCORITAMAB
     Indication: Diffuse large B-cell lymphoma
     Route: 058
     Dates: start: 20250111, end: 20250212
  3. METHYLPREDNISOLONE [Suspect]
     Active Substance: METHYLPREDNISOLONE
     Indication: Diffuse large B-cell lymphoma
     Route: 065
  4. CISPLATIN [Suspect]
     Active Substance: CISPLATIN
     Indication: Diffuse large B-cell lymphoma
     Route: 065
  5. CYTARABINE [Suspect]
     Active Substance: CYTARABINE
     Indication: Diffuse large B-cell lymphoma
     Route: 065
  6. ETOPOSIDE [Suspect]
     Active Substance: ETOPOSIDE
     Indication: Diffuse large B-cell lymphoma
     Route: 065
  7. CYTARABINE [Concomitant]
     Active Substance: CYTARABINE
     Indication: Product used for unknown indication
  8. PLATINOL [Concomitant]
     Active Substance: CISPLATIN
     Indication: Product used for unknown indication

REACTIONS (9)
  - Immune effector cell-associated neurotoxicity syndrome [Fatal]
  - Neurological decompensation [Fatal]
  - Hemiplegia [Unknown]
  - Hemiparesis [Unknown]
  - Musculoskeletal disorder [Unknown]
  - Pyrexia [Unknown]
  - Bacteraemia [Unknown]
  - Neck mass [Unknown]
  - Klebsiella bacteraemia [Unknown]

NARRATIVE: CASE EVENT DATE: 20250218
